FAERS Safety Report 24439412 (Version 2)
Quarter: 2024Q4

REPORT INFORMATION
  Report Type: Spontaneous
  Country: US (occurrence: US)
  Receive Date: 20241015
  Receipt Date: 20241211
  Transmission Date: 20250115
  Serious: No
  Sender: MERCK
  Company Number: US-009507513-2410USA002145

PATIENT
  Sex: Female
  Weight: 63.5 kg

DRUGS (7)
  1. WINREVAIR [Suspect]
     Active Substance: SOTATERCEPT-CSRK
     Indication: Product used for unknown indication
     Dosage: UNK
     Dates: start: 2024
  2. ORENITRAM [Suspect]
     Active Substance: TREPROSTINIL
     Indication: Pulmonary arterial hypertension
     Dosage: 2.5 MG AND THE CURRENT DOSE WAS REPORTED AS 10 MG, TID
     Route: 048
     Dates: start: 20220317
  3. FUROSEMIDE [Concomitant]
     Active Substance: FUROSEMIDE
  4. MECLIZINE HYDROCHLORIDE [Concomitant]
     Active Substance: MECLIZINE HYDROCHLORIDE
  5. LETAIRIS [Concomitant]
     Active Substance: AMBRISENTAN
  6. ALDACTONE [Concomitant]
     Active Substance: SPIRONOLACTONE
  7. OXYGEN [Concomitant]
     Active Substance: OXYGEN

REACTIONS (6)
  - Headache [Unknown]
  - Injection site pain [Unknown]
  - Injection site haemorrhage [Unknown]
  - Migraine [Not Recovered/Not Resolved]
  - Rash macular [Unknown]
  - Abdominal pain upper [Unknown]

NARRATIVE: CASE EVENT DATE: 20240101
